FAERS Safety Report 6868171-5 (Version None)
Quarter: 2010Q3

REPORT INFORMATION
  Report Type: 
  Country: None (occurrence: None)
  Receive Date: 20100722
  Receipt Date: 20080515
  Transmission Date: 20110219
  Serious: No
  Sender: FDA-Public Use
  Company Number: US-PFIZER INC-2008043138

PATIENT
  Sex: Female
  Weight: 62.3 kg

DRUGS (3)
  1. CHANTIX [Suspect]
     Indication: SMOKING CESSATION THERAPY
     Dates: start: 20080506
  2. ATENOLOL [Concomitant]
     Indication: BLOOD PRESSURE ABNORMAL
  3. HYDROCODONE [Concomitant]

REACTIONS (3)
  - BACK DISORDER [None]
  - DEPRESSED MOOD [None]
  - MALAISE [None]
